FAERS Safety Report 6057808-9 (Version None)
Quarter: 2009Q1

REPORT INFORMATION
  Report Type: 
  Country: None (occurrence: None)
  Receive Date: 20090129
  Receipt Date: 20090121
  Transmission Date: 20090719
  Serious: Yes (Other)
  Sender: FDA-Public Use
  Company Number: US-ASTRAZENECA-2009UW01665

PATIENT
  Age: 42 Year
  Sex: Male

DRUGS (5)
  1. SEROQUEL [Suspect]
     Route: 048
  2. IMITREX [Suspect]
  3. ZOLOFT [Suspect]
  4. ZOLOFT [Suspect]
  5. PREDNISONE [Concomitant]

REACTIONS (5)
  - COGWHEEL RIGIDITY [None]
  - DYSPHEMIA [None]
  - MOVEMENT DISORDER [None]
  - SEROTONIN SYNDROME [None]
  - TREMOR [None]
